FAERS Safety Report 4486445-2 (Version None)
Quarter: 2004Q4

REPORT INFORMATION
  Report Type: 
  Country: None (occurrence: None)
  Receive Date: 20041026
  Receipt Date: 20041026
  Transmission Date: 20050328
  Serious: Yes (Other)
  Sender: FDA-Public Use
  Company Number: None

PATIENT

DRUGS (4)
  1. MIDAZOLAM 2 MG / 2 ML AMERICAL PHARMACEUTICAL CONSCIOUS SEDATION [Suspect]
     Dates: start: 20040815, end: 20041020
  2. MIDAZOLAM 2 MG / 2 ML AMERICAL PHARMACEUTICAL CONSCIOUS SEDATION [Suspect]
  3. MIDAZOLAM 5 MG / 5 ML AMERICAL PHARMACEUTICAL CONSCIOUS SEDATION [Suspect]
     Dates: start: 20040815, end: 20041025
  4. MIDAZOLAM 5 MG / 5 ML AMERICAL PHARMACEUTICAL CONSCIOUS SEDATION [Suspect]

REACTIONS (2)
  - PHARMACEUTICAL PRODUCT COMPLAINT [None]
  - THERAPEUTIC RESPONSE DECREASED [None]
